FAERS Safety Report 16150466 (Version 1)
Quarter: 2019Q2

REPORT INFORMATION
  Report Type: Report from Study
  Country: AU (occurrence: AU)
  Receive Date: 20190402
  Receipt Date: 20190402
  Transmission Date: 20190711
  Serious: Yes (Hospitalization)
  Sender: FDA-Public Use
  Company Number: AU-REGENERON PHARMACEUTICALS, INC.-2019-24322

PATIENT

DRUGS (10)
  1. PERINDOPRIL [Concomitant]
     Active Substance: PERINDOPRIL
     Indication: HYPERTENSION
  2. CANNABIS [Concomitant]
     Active Substance: CANNABIS SATIVA SUBSP. INDICA TOP
     Indication: FACIAL PAIN
     Dosage: 1 DF, AS NECESSARY
     Route: 061
     Dates: start: 201810
  3. ATENOLOL. [Concomitant]
     Active Substance: ATENOLOL
     Indication: HYPERTENSION
     Dosage: 50 MG, QD
     Route: 048
     Dates: start: 2003
  4. OXYCODONE HYDROCHLORIDE. [Concomitant]
     Active Substance: OXYCODONE HYDROCHLORIDE
     Indication: FACIAL PAIN
     Dosage: 2.5 MG, BID
     Route: 048
     Dates: start: 20190321
  5. HYDROCORTISONE. [Concomitant]
     Active Substance: HYDROCORTISONE
     Indication: INFUSION RELATED REACTION
     Dosage: 200 MG, QD
     Route: 042
     Dates: start: 20190321, end: 20190321
  6. RANITIDINE. [Concomitant]
     Active Substance: RANITIDINE
     Indication: INFUSION RELATED REACTION
     Dosage: 50 MG, QD
     Route: 042
     Dates: start: 20190321, end: 20190321
  7. CEMIPLIMAB [Suspect]
     Active Substance: CEMIPLIMAB
     Dosage: 600 MG, Q4W
     Route: 042
     Dates: start: 20190321
  8. NALOXONE [Concomitant]
     Active Substance: NALOXONE
     Indication: FACIAL PAIN
     Dosage: 1.25 MG, BID
     Dates: start: 20190321
  9. CEMIPLIMAB [Suspect]
     Active Substance: CEMIPLIMAB
     Indication: SQUAMOUS CELL CARCINOMA OF SKIN
     Dosage: 600 MG, Q4W
     Route: 042
     Dates: start: 20181227, end: 20190321
  10. PROMETHAZINE [Concomitant]
     Active Substance: PROMETHAZINE\PROMETHAZINE HYDROCHLORIDE
     Indication: INFUSION RELATED REACTION
     Dosage: 25 MG, QD
     Route: 042
     Dates: start: 20190321, end: 20190321

REACTIONS (2)
  - Dyspnoea [Not Recovered/Not Resolved]
  - Infusion related reaction [Recovered/Resolved]

NARRATIVE: CASE EVENT DATE: 20190321
